FAERS Safety Report 8815574 (Version 2)
Quarter: 2012Q4

REPORT INFORMATION
  Report Type: 
  Country: BE (occurrence: BE)
  Receive Date: 20120928
  Receipt Date: 20121016
  Transmission Date: 20130627
  Serious: Yes (Other)
  Sender: FDA-Public Use
  Company Number: BE-JNJFOC-20120803728

PATIENT

DRUGS (2)
  1. REMICADE [Suspect]
     Indication: COLITIS ULCERATIVE
     Dosage: had received 3 infusions approximately
     Route: 042
     Dates: start: 201011, end: 201102
  2. IMURAN [Concomitant]
     Route: 065
     Dates: start: 2007

REACTIONS (2)
  - Tuberculosis [Recovered/Resolved]
  - Pneumonia [Unknown]
